FAERS Safety Report 8476593-4 (Version None)
Quarter: 2012Q2

REPORT INFORMATION
  Report Type: 
  Country: None (occurrence: None)
  Receive Date: 20120622
  Receipt Date: 20120613
  Transmission Date: 20120825
  Serious: Yes (Hospitalization)
  Sender: FDA-Public Use
  Company Number: 2012SP032460

PATIENT
  Age: 64 Year
  Sex: Female

DRUGS (3)
  1. REBETOL [Suspect]
     Indication: PRODUCT USED FOR UNKNOWN INDICATION
     Dosage: PO
     Route: 048
     Dates: start: 20120329, end: 20120529
  2. TELAVIC (ANTIVIRALS NOS) [Suspect]
     Indication: PRODUCT USED FOR UNKNOWN INDICATION
     Dosage: PO
     Route: 048
     Dates: start: 20120329, end: 20120529
  3. PEG-INTRON [Suspect]
     Indication: PRODUCT USED FOR UNKNOWN INDICATION
     Dosage: ; PARN
     Route: 051
     Dates: start: 20120329, end: 20120529

REACTIONS (4)
  - PYREXIA [None]
  - DRUG ERUPTION [None]
  - ORAL MUCOSA EROSION [None]
  - ENANTHEMA [None]
